FAERS Safety Report 6207104-1 (Version None)
Quarter: 2009Q2

REPORT INFORMATION
  Report Type: 
  Country: None (occurrence: None)
  Receive Date: 20090528
  Receipt Date: 20090520
  Transmission Date: 20091009
  Serious: Yes (Death, Life-Threatening)
  Sender: FDA-Public Use
  Company Number: CH-ELI_LILLY_AND_COMPANY-CH200905004031

PATIENT
  Age: 46 Year
  Sex: Female

DRUGS (9)
  1. ZYPREXA [Suspect]
     Indication: SCHIZOAFFECTIVE DISORDER DEPRESSIVE TYPE
     Dosage: 15 MG, DAILY (1/D)
     Route: 048
     Dates: end: 20081023
  2. ZYPREXA [Suspect]
     Dosage: 10 MG, DAILY (1/D)
     Route: 048
     Dates: start: 20081024, end: 20081031
  3. ZYPREXA [Suspect]
     Dosage: 15 MG, DAILY (1/D)
     Route: 048
     Dates: start: 20081101
  4. EFFEXOR [Concomitant]
     Indication: SCHIZOAFFECTIVE DISORDER DEPRESSIVE TYPE
     Dosage: 225 MG, DAILY (1/D)
     Route: 048
     Dates: start: 20081001
  5. REMERON [Concomitant]
     Indication: SCHIZOAFFECTIVE DISORDER DEPRESSIVE TYPE
     Dosage: 30 MG, DAILY (1/D)
     Route: 048
     Dates: start: 20081001
  6. ELTROXIN [Concomitant]
     Indication: HYPOTHYROIDISM
     Dosage: 0.05 MG, DAILY (1/D)
     Route: 048
     Dates: start: 20081103
  7. QUILONORM RETARD [Concomitant]
     Indication: SUICIDE ATTEMPT
     Dosage: 225 MG, DAILY (1/D)
     Route: 048
     Dates: start: 20081104, end: 20081105
  8. QUILONORM RETARD [Concomitant]
     Dosage: 450 MG, DAILY (1/D)
     Route: 048
     Dates: start: 20081106, end: 20081107
  9. QUILONORM RETARD [Concomitant]
     Dosage: 675 MG, DAILY (1/D)
     Route: 048
     Dates: start: 20081108

REACTIONS (1)
  - COMPLETED SUICIDE [None]
